FAERS Safety Report 12745494 (Version 1)
Quarter: 2016Q3

REPORT INFORMATION
  Report Type: Spontaneous
  Country: US (occurrence: US)
  Receive Date: 20160915
  Receipt Date: 20160915
  Transmission Date: 20161109
  Serious: No
  Sender: FDA-Public Use
  Company Number: US-PFIZER INC-2016428019

PATIENT
  Sex: Female

DRUGS (1)
  1. EFFEXOR XR [Suspect]
     Active Substance: VENLAFAXINE HYDROCHLORIDE
     Dosage: UNK
     Dates: start: 201609

REACTIONS (5)
  - Dizziness [Unknown]
  - Constipation [Unknown]
  - Nausea [Unknown]
  - Dry mouth [Unknown]
  - Dyspnoea [Unknown]

NARRATIVE: CASE EVENT DATE: 201609
